FAERS Safety Report 17751542 (Version 2)
Quarter: 2020Q2

REPORT INFORMATION
  Report Type: Spontaneous
  Country: DE (occurrence: DE)
  Receive Date: 20200506
  Receipt Date: 20200528
  Transmission Date: 20200714
  Serious: Yes (Hospitalization, Other)
  Sender: FDA-Public Use
  Company Number: DE-PFIZER INC-2020175470

PATIENT
  Sex: Male

DRUGS (2)
  1. CYTOTEC [Suspect]
     Active Substance: MISOPROSTOL
     Indication: LABOUR INDUCTION
     Dosage: INTAKE STARTED WITH 25 UG ON 14FEB2018 AT 11:40 UNTIL 50 UG AT 18:25
     Route: 064
     Dates: start: 20180114, end: 20180114
  2. CYTOTEC [Suspect]
     Active Substance: MISOPROSTOL
     Indication: PREMATURE RUPTURE OF MEMBRANES

REACTIONS (2)
  - Foetal exposure during delivery [Recovered/Resolved]
  - Loss of consciousness [Recovered/Resolved]

NARRATIVE: CASE EVENT DATE: 201801
